FAERS Safety Report 10687219 (Version 1)
Quarter: 2015Q1

REPORT INFORMATION
  Report Type: Spontaneous
  Country: US (occurrence: US)
  Receive Date: 20150102
  Receipt Date: 20150102
  Transmission Date: 20150720
  Serious: Yes (Death, Hospitalization, Other)
  Sender: FDA-Public Use
  Company Number: US-AUROBINDO-AUR-APL-2014-13529

PATIENT
  Age: 35 Year
  Sex: Male

DRUGS (3)
  1. DARUNAVIR [Suspect]
     Active Substance: DARUNAVIR
     Indication: ANTIRETROVIRAL THERAPY
     Dosage: UNK, ONCE A DAY
     Route: 065
  2. EMTRICITABINE AND TENOFOVIR DISOPROXIL FUMARATE TABLETS 200MG/300MG [Suspect]
     Active Substance: EMTRICITABINE\TENOFOVIR DISOPROXIL FUMARATE
     Indication: ANTIRETROVIRAL THERAPY
     Dosage: UNK, ONCE A DAY
     Route: 065
  3. RITONAVIR. [Suspect]
     Active Substance: RITONAVIR
     Indication: ANTIRETROVIRAL THERAPY
     Dosage: UNK, ONCE A DAY
     Route: 065

REACTIONS (18)
  - Immune reconstitution inflammatory syndrome [Unknown]
  - Cognitive disorder [Unknown]
  - Blood pressure systolic decreased [None]
  - Cachexia [Unknown]
  - Pyrexia [Unknown]
  - Acute kidney injury [None]
  - CSF protein increased [Not Recovered/Not Resolved]
  - Meningitis cryptococcal [Unknown]
  - Hemiparesis [Unknown]
  - White blood cell count decreased [None]
  - CNS ventriculitis [Unknown]
  - Death [Fatal]
  - Photophobia [Unknown]
  - CSF glucose decreased [Not Recovered/Not Resolved]
  - Nystagmus [Unknown]
  - CSF pressure increased [Not Recovered/Not Resolved]
  - Headache [Unknown]
  - Mental status changes [Unknown]
